FAERS Safety Report 20439651 (Version 1)
Quarter: 2022Q1

REPORT INFORMATION
  Report Type: Spontaneous
  Country: CN (occurrence: None)
  Receive Date: 20220207
  Receipt Date: 20220207
  Transmission Date: 20220423
  Serious: Yes (Other)
  Sender: FDA-Public Use
  Company Number: 2022A051119

PATIENT
  Age: 48 Year
  Sex: Male

DRUGS (4)
  1. GEFITINIB [Suspect]
     Active Substance: GEFITINIB
     Indication: Non-small cell lung cancer
     Route: 048
     Dates: start: 201712
  2. PEMETREXED/CARBOPLATIN [Concomitant]
     Indication: Non-small cell lung cancer
     Dosage: FOUR CYCLES
     Dates: start: 201811
  3. PEMBROLIZUMAB [Concomitant]
     Active Substance: PEMBROLIZUMAB
     Indication: Non-small cell lung cancer
     Dates: start: 201907
  4. CATEQUENTINIB [Concomitant]
     Active Substance: CATEQUENTINIB
     Indication: Non-small cell lung cancer
     Dosage: 12 MG ONCE DAILY ON DAYS 1-14 OF A 21-D CYCLE
     Dates: start: 202005

REACTIONS (2)
  - Drug resistance [Unknown]
  - Malignant neoplasm progression [Unknown]
